FAERS Safety Report 10411754 (Version 1)
Quarter: 2014Q2

REPORT INFORMATION
  Report Type: Spontaneous
  Country: US (occurrence: None)
  Receive Date: 20140604
  Receipt Date: 20140604
  Transmission Date: 20141212
  Serious: No
  Sender: FDA-Public Use
  Company Number: 163-POMAL-14044775

PATIENT
  Age: 59 Year
  Sex: Female
  Weight: 72.1 kg

DRUGS (12)
  1. POMALYST [Suspect]
     Indication: PLASMA CELL MYELOMA
     Dosage: 21 IN 28D
     Dates: start: 20140129
  2. PROCRIT (ERYTHROPOIETIN) [Concomitant]
  3. KYPROLIS (CARFILZOMIB) [Concomitant]
  4. ACYCLOVIR (ACICLOVIR) [Concomitant]
  5. VALTREX (VALACICLOVIR HYDROCHLORIDE) [Concomitant]
  6. CIPROFLOXACIN HCL (CIPROFLOXACIN HYDROCHLORIDE) [Concomitant]
  7. OXYCODONE HCL (OXYCODONE HYDROCHLORIDE) [Concomitant]
  8. ONDANSETRON HCL (ONDANSETRON HYDROCHLORIDE) [Concomitant]
  9. SANCUSO (GRANISETRON HYDROCHLORIDE) [Concomitant]
  10. LIDOCAINE PRILOCAINE (EMLA) [Concomitant]
  11. OXYCONTIN (OXYCODONE HYDROCHLORIDE) [Concomitant]
  12. DEXAMETHASONE (DEXAMETHASONE) [Concomitant]

REACTIONS (2)
  - Laboratory test abnormal [None]
  - Asthenia [None]
